FAERS Safety Report 24895251 (Version 1)
Quarter: 2025Q1

REPORT INFORMATION
  Report Type: Spontaneous
  Country: US (occurrence: None)
  Receive Date: 20250128
  Receipt Date: 20250128
  Transmission Date: 20250408
  Serious: Yes (Life-Threatening)
  Sender: FDA-CTU
  Company Number: None

PATIENT
  Age: 80 Year
  Sex: Female

DRUGS (1)
  1. CEFTRIAXONE [Suspect]
     Active Substance: CEFTRIAXONE
     Indication: Pneumonia
     Route: 040
     Dates: start: 20241203, end: 20241203

REACTIONS (2)
  - Anaphylactic shock [None]
  - Injection related reaction [None]

NARRATIVE: CASE EVENT DATE: 20241203
